FAERS Safety Report 8950581 (Version 1)
Quarter: 2012Q4

REPORT INFORMATION
  Report Type: 
  Country: FR (occurrence: FR)
  Receive Date: 20121206
  Receipt Date: 20121206
  Transmission Date: 20130627
  Serious: Yes (Other)
  Sender: FDA-Public Use
  Company Number: FR-ALLERGAN-1215432US

PATIENT
  Sex: Male

DRUGS (1)
  1. OZURDEX [Suspect]
     Indication: RETINAL VEIN BRANCH OCCLUSION
     Dosage: 0.7 mg, single

REACTIONS (1)
  - Chorioretinopathy [Recovered/Resolved]
